FAERS Safety Report 21408596 (Version 1)
Quarter: 2022Q4

REPORT INFORMATION
  Report Type: Spontaneous
  Country: CN (occurrence: CN)
  Receive Date: 20221004
  Receipt Date: 20221004
  Transmission Date: 20230113
  Serious: Yes (Hospitalization, Other)
  Sender: FDA-Public Use
  Company Number: CN-GLAXOSMITHKLINE-CNCH2022APC036211

PATIENT

DRUGS (7)
  1. DICLOFENAC SODIUM [Suspect]
     Active Substance: DICLOFENAC SODIUM
     Indication: Gout
     Dosage: UNK
  2. DICLOFENAC DIETHYLAMINE [Suspect]
     Active Substance: DICLOFENAC DIETHYLAMINE
     Indication: Gout
     Dosage: UNK, TID
     Route: 061
  3. WARFARIN [Suspect]
     Active Substance: WARFARIN
     Indication: Gout
     Dosage: UNK
  4. WARFARIN [Suspect]
     Active Substance: WARFARIN
     Dosage: 3 MG, QD
  5. AMLODIPINE BESYLATE [Concomitant]
     Active Substance: AMLODIPINE BESYLATE
     Indication: Hypertension
     Dosage: 5 MG, BID (REGULARLY)
  6. COLCHICINE [Concomitant]
     Active Substance: COLCHICINE
     Indication: Gout
     Dosage: 0.5 MG, QID
  7. ALLOPURINOL [Concomitant]
     Active Substance: ALLOPURINOL
     Indication: Blood uric acid
     Dosage: 0.5 G, QD

REACTIONS (3)
  - Upper gastrointestinal haemorrhage [Recovered/Resolved]
  - Pain [Recovered/Resolved]
  - Subcutaneous haematoma [Recovered/Resolved]
